FAERS Safety Report 13777278 (Version 1)
Quarter: 2017Q3

REPORT INFORMATION
  Report Type: Spontaneous
  Country: US (occurrence: US)
  Receive Date: 20170720
  Receipt Date: 20170720
  Transmission Date: 20171127
  Serious: Yes (Death, Hospitalization)
  Sender: FDA-Public Use
  Company Number: US-INSYS THERAPEUTICS, INC-INS201707-000446

PATIENT
  Age: 49 Year
  Sex: Male

DRUGS (3)
  1. DURAGESIC [Concomitant]
     Active Substance: FENTANYL
  2. OXYCODONE [Concomitant]
     Active Substance: OXYCODONE
  3. SUBSYS [Suspect]
     Active Substance: FENTANYL
     Indication: PAIN
     Route: 060

REACTIONS (1)
  - Neoplasm progression [Fatal]

NARRATIVE: CASE EVENT DATE: 20150828
